FAERS Safety Report 25549448 (Version 1)
Quarter: 2025Q3

REPORT INFORMATION
  Report Type: Spontaneous
  Country: US (occurrence: US)
  Receive Date: 20250714
  Receipt Date: 20250714
  Transmission Date: 20251021
  Serious: No
  Sender: INSUD PHARMA
  Company Number: US-INSUD PHARMA-2507US05566

PATIENT

DRUGS (1)
  1. VIENVA TM [Suspect]
     Active Substance: ETHINYL ESTRADIOL\LEVONORGESTREL
     Indication: Reproductive system disorder prophylaxis
     Dosage: 1, QD
     Route: 048
     Dates: start: 2024

REACTIONS (5)
  - Lichen sclerosus [Recovering/Resolving]
  - Vulvovaginal injury [Recovering/Resolving]
  - Vaginal disorder [Recovering/Resolving]
  - Product use in unapproved indication [Unknown]
  - Product prescribing issue [Unknown]

NARRATIVE: CASE EVENT DATE: 20240101
